FAERS Safety Report 17853445 (Version 2)
Quarter: 2020Q3

REPORT INFORMATION
  Report Type: Report from Study
  Country: US (occurrence: US)
  Receive Date: 20200602
  Receipt Date: 20200721
  Transmission Date: 20201103
  Serious: Yes (Other)
  Sender: FDA-Public Use
  Company Number: US-BIOMARINAP-US-2020-130481

PATIENT
  Age: 16 Year
  Sex: Male

DRUGS (1)
  1. NAGLAZYME [Suspect]
     Active Substance: GALSULFASE
     Indication: MUCOPOLYSACCHARIDOSIS VI
     Dosage: 1 MILLIGRAM/KILOGRAM, QW
     Route: 042
     Dates: start: 20100929, end: 20130415

REACTIONS (1)
  - Vertebral foraminal stenosis [Recovering/Resolving]

NARRATIVE: CASE EVENT DATE: 20120117
